FAERS Safety Report 20910405 (Version 1)
Quarter: 2022Q2

REPORT INFORMATION
  Report Type: Spontaneous
  Country: US (occurrence: US)
  Receive Date: 20220603
  Receipt Date: 20220603
  Transmission Date: 20220721
  Serious: No
  Sender: FDA-Public Use
  Company Number: US-PFIZER INC-202200785136

PATIENT
  Age: 78 Year
  Sex: Male
  Weight: 83.46 kg

DRUGS (2)
  1. PAXLOVID [Suspect]
     Active Substance: NIRMATRELVIR\RITONAVIR
     Indication: COVID-19 treatment
     Dosage: 3 DF, 2X/DAY (MORNING AND NIGHT, RITONAVIR-100 MG AND 2 OF THE NIRMATRELVIR TABLETS- 150MG)
     Dates: start: 20220527, end: 20220531
  2. OMEPRAZOLE [Suspect]
     Active Substance: OMEPRAZOLE
     Dosage: 40 MG, 2X/DAY

REACTIONS (2)
  - Hiccups [Not Recovered/Not Resolved]
  - Abdominal pain lower [Not Recovered/Not Resolved]

NARRATIVE: CASE EVENT DATE: 20220530
